FAERS Safety Report 23969989 (Version 1)
Quarter: 2024Q2

REPORT INFORMATION
  Report Type: Spontaneous
  Country: US (occurrence: US)
  Receive Date: 20240613
  Receipt Date: 20240613
  Transmission Date: 20240715
  Serious: Yes (Other)
  Sender: FDA-Public Use
  Company Number: US-INDIVIOR US-INDV-145470-2024

PATIENT

DRUGS (4)
  1. SUBLOCADE [Suspect]
     Active Substance: BUPRENORPHINE
     Indication: Product used for unknown indication
     Dosage: 300 MILLIGRAM, QMO
     Route: 065
     Dates: start: 2021
  2. SUBLOCADE [Suspect]
     Active Substance: BUPRENORPHINE
     Dosage: 300 MILLIGRAM, QMO
     Route: 065
  3. TACROLIMUS [Suspect]
     Active Substance: TACROLIMUS
     Indication: Intestinal transplant
     Dosage: 4 MILLIGRAM, BID
     Route: 065
  4. TACROLIMUS [Suspect]
     Active Substance: TACROLIMUS
     Dosage: UNK (LOW DOSE)
     Route: 065

REACTIONS (2)
  - Vulval cancer [Not Recovered/Not Resolved]
  - Potentiating drug interaction [Not Recovered/Not Resolved]

NARRATIVE: CASE EVENT DATE: 20221201
